FAERS Safety Report 23312078 (Version 1)
Quarter: 2023Q4

REPORT INFORMATION
  Report Type: Spontaneous
  Country: DE (occurrence: DE)
  Receive Date: 20231219
  Receipt Date: 20231219
  Transmission Date: 20240110
  Serious: Yes (Other)
  Sender: FDA-Public Use
  Company Number: None

PATIENT
  Age: 34 Year
  Sex: Female
  Weight: 120 kg

DRUGS (4)
  1. CEFUROXIME AXETIL [Interacting]
     Active Substance: CEFUROXIME AXETIL
     Indication: Respiratory tract infection
     Dosage: 500 MILLIGRAM, BID(EVERY 12 HOUR)
     Route: 048
     Dates: start: 20180523, end: 20180523
  2. CEFUROXIME AXETIL [Interacting]
     Active Substance: CEFUROXIME AXETIL
     Indication: Streptococcal infection
  3. CITALOPRAM [Interacting]
     Active Substance: CITALOPRAM HYDROBROMIDE
     Indication: Depression
     Dosage: 20 MILLIGRAM, QD( EVERY 1 DAY)
     Route: 048
  4. PANTOPRAZOLE SODIUM [Concomitant]
     Active Substance: PANTOPRAZOLE SODIUM
     Indication: Gastritis prophylaxis
     Dosage: 40 MILLIGRAM, QD ( EVERY 1 DAY)
     Route: 048

REACTIONS (5)
  - Hallucination, visual [Recovered/Resolved]
  - Anxiety [Recovered/Resolved]
  - Drug interaction [Recovered/Resolved]
  - Panic attack [Recovered/Resolved]
  - Palpitations [Recovered/Resolved]

NARRATIVE: CASE EVENT DATE: 20180523
